FAERS Safety Report 5006400-3 (Version None)
Quarter: 2006Q2

REPORT INFORMATION
  Report Type: 
  Country: None (occurrence: None)
  Receive Date: 20060519
  Receipt Date: 20060331
  Transmission Date: 20061013
  Serious: Yes (Other)
  Sender: FDA-Public Use
  Company Number: PHFR2006GB01338

PATIENT
  Age: 34 Year
  Sex: Male
  Weight: 68.7 kg

DRUGS (3)
  1. CLOZARIL [Suspect]
     Indication: SCHIZOPHRENIA
     Dosage: 125MG / DAY
     Route: 048
     Dates: start: 20060323, end: 20060331
  2. QUETIAPINE FUMARATE [Concomitant]
     Indication: SCHIZOPHRENIA
     Dosage: 800MG / DAY
     Route: 048
     Dates: start: 20051108
  3. NALTREXONE [Concomitant]
     Indication: ALCOHOLISM
     Dosage: 50MG / DAY
     Route: 048
     Dates: start: 20051116

REACTIONS (7)
  - CYANOSIS [None]
  - GENERAL PHYSICAL HEALTH DETERIORATION [None]
  - GRAND MAL CONVULSION [None]
  - MENTAL IMPAIRMENT [None]
  - MUSCLE STRAIN [None]
  - PAIN [None]
  - PLATELET COUNT DECREASED [None]
